FAERS Safety Report 25906039 (Version 1)
Quarter: 2025Q4

REPORT INFORMATION
  Report Type: Spontaneous
  Country: JP (occurrence: JP)
  Receive Date: 20251010
  Receipt Date: 20251010
  Transmission Date: 20260117
  Serious: Yes (Other)
  Sender: ROCHE
  Company Number: JP-CHUGAI-2025031340

PATIENT
  Age: 72 Year
  Sex: Female

DRUGS (3)
  1. AVASTIN [Suspect]
     Active Substance: BEVACIZUMAB
     Indication: Colon cancer
     Dosage: UNK
     Route: 042
  2. FLUOROURACIL [Concomitant]
     Active Substance: FLUOROURACIL
     Indication: Colon cancer
     Dosage: UNK
     Route: 065
  3. VABYSMO [Concomitant]
     Active Substance: FARICIMAB-SVOA

REACTIONS (5)
  - Wound infection [Unknown]
  - Femur fracture [Unknown]
  - Staphylococcal infection [Unknown]
  - Impaired healing [Unknown]
  - Myelosuppression [Unknown]
